FAERS Safety Report 5251881-3 (Version None)
Quarter: 2007Q1

REPORT INFORMATION
  Report Type: 
  Country: None (occurrence: None)
  Receive Date: 20070223
  Receipt Date: 20070212
  Transmission Date: 20070707
  Serious: Yes (Death, Hospitalization)
  Sender: FDA-Public Use
  Company Number: 2007SP002739

PATIENT
  Age: 68 Year
  Sex: Female

DRUGS (18)
  1. NOXAFIL [Suspect]
     Indication: ASPERGILLOSIS
     Dosage: 800 MG;QD;PO
     Route: 048
     Dates: start: 20061215, end: 20061222
  2. NOXAFIL [Suspect]
     Indication: PROPHYLAXIS
     Dosage: 800 MG;QD;PO
     Route: 048
     Dates: start: 20061215, end: 20061222
  3. TAVANIC [Concomitant]
  4. TEGRETOL [Concomitant]
  5. LISKANTIN [Concomitant]
  6. MAGNO SANOL [Concomitant]
  7. KALINOR RET [Concomitant]
  8. CARMUSTINE [Concomitant]
  9. ARAC [Concomitant]
  10. ETOPOSIDE [Concomitant]
  11. MELPHALAN [Concomitant]
  12. PALIFORMIN [Concomitant]
  13. AMBISOME [Concomitant]
  14. CANCIDAS [Concomitant]
  15. DIFLUCAN [Concomitant]
  16. VFEND [Concomitant]
  17. ACYCLOVIR [Concomitant]
  18. CLEXANE [Concomitant]

REACTIONS (2)
  - ACUTE HEPATIC FAILURE [None]
  - HAEMODIALYSIS [None]
